FAERS Safety Report 6722543-8 (Version None)
Quarter: 2010Q2

REPORT INFORMATION
  Report Type: 
  Country: None (occurrence: None)
  Receive Date: 20100512
  Receipt Date: 20100506
  Transmission Date: 20101027
  Serious: Yes (Hospitalization)
  Sender: FDA-Public Use
  Company Number: JP-BAYER-201012165BYL

PATIENT
  Age: 28 Year
  Sex: Female

DRUGS (2)
  1. ASPIRIN [Suspect]
     Indication: ANTIPHOSPHOLIPID SYNDROME
     Route: 048
  2. HEPARIN [Suspect]
     Indication: ANTIPHOSPHOLIPID SYNDROME
     Route: 065

REACTIONS (2)
  - INTRA-UTERINE DEATH [None]
  - THROMBOCYTOPENIA [None]
